FAERS Safety Report 4839425-9 (Version None)
Quarter: 2005Q4

REPORT INFORMATION
  Report Type: 
  Country: None (occurrence: None)
  Receive Date: 20051129
  Receipt Date: 20050330
  Transmission Date: 20060501
  Serious: No
  Sender: FDA-Public Use
  Company Number: US-GLAXOSMITHKLINE-A0551953A

PATIENT
  Age: 42 Year
  Sex: Female

DRUGS (3)
  1. WELLBUTRIN SR [Suspect]
     Indication: DRUG USE FOR UNKNOWN INDICATION
     Dosage: 200MG TWICE PER DAY
     Route: 048
     Dates: start: 20050328
  2. ADVAIR DISKUS 100/50 [Concomitant]
  3. CLONAZEPAM [Concomitant]

REACTIONS (1)
  - OVERDOSE [None]
